FAERS Safety Report 19884828 (Version 1)
Quarter: 2021Q3

REPORT INFORMATION
  Report Type: Spontaneous
  Country: US (occurrence: US)
  Receive Date: 20210924
  Receipt Date: 20210924
  Transmission Date: 20211014
  Serious: Yes (Hospitalization)
  Sender: FDA-Public Use
  Company Number: None

PATIENT
  Age: 77 Year
  Sex: Female

DRUGS (1)
  1. CAPECITABINE TAB 500MG [Suspect]
     Active Substance: CAPECITABINE
     Route: 048
     Dates: start: 202107

REACTIONS (7)
  - Taste disorder [None]
  - Asthenia [None]
  - Wrong technique in product usage process [None]
  - Constipation [None]
  - Diarrhoea [None]
  - Urinary tract infection [None]
  - Nausea [None]

NARRATIVE: CASE EVENT DATE: 20210824
